FAERS Safety Report 17281908 (Version 1)
Quarter: 2020Q1

REPORT INFORMATION
  Report Type: Spontaneous
  Country: US (occurrence: US)
  Receive Date: 20191229
  Receipt Date: 20191229
  Transmission Date: 20200409
  Serious: Yes (Death, Life-Threatening, Hospitalization)
  Sender: FDA-Public Use
  Company Number: None

PATIENT
  Age: 81 Year
  Sex: Female
  Weight: 88.45 kg

DRUGS (1)
  1. THERAWORX RELIEF MUSCLE CRAMP AND SPASM RELIEF [Suspect]
     Active Substance: MAGNESIUM SULFATE HEPTAHYDRATE
     Dates: start: 20190802, end: 20190803

REACTIONS (10)
  - Application site burn [None]
  - Skin graft [None]
  - Application site pain [None]
  - Chemical burn [None]
  - Dementia [None]
  - Loss of personal independence in daily activities [None]
  - Blister [None]
  - Urinary tract infection [None]
  - Transplant [None]
  - General physical health deterioration [None]

NARRATIVE: CASE EVENT DATE: 20190802
